FAERS Safety Report 9777968 (Version 2)
Quarter: 2014Q1

REPORT INFORMATION
  Report Type: Spontaneous
  Country: GB (occurrence: GB)
  Receive Date: 20131223
  Receipt Date: 20140327
  Transmission Date: 20141002
  Serious: Yes (Death, Hospitalization)
  Sender: FDA-Public Use
  Company Number: GB-JNJFOC-20131208571

PATIENT
  Sex: Male

DRUGS (8)
  1. ZYTIGA [Suspect]
     Indication: PROSTATE CANCER METASTATIC
     Route: 048
     Dates: start: 20131206
  2. ZYTIGA [Suspect]
     Indication: PROSTATE CANCER METASTATIC
     Route: 048
     Dates: start: 20131101, end: 20131127
  3. TAMSULOSIN [Concomitant]
     Route: 065
     Dates: start: 20130101
  4. OMEPRAZOLE [Concomitant]
     Route: 065
     Dates: start: 20130101
  5. ASPIRIN [Concomitant]
     Indication: BLOOD PRESSURE INCREASED
     Route: 065
     Dates: start: 20130101
  6. MST [Concomitant]
     Indication: PAIN
     Route: 065
     Dates: start: 20130101
  7. METOCLOPRAMIDE [Concomitant]
     Indication: NAUSEA
     Route: 065
     Dates: start: 20110101
  8. ZOLADEX [Concomitant]
     Indication: PROSTATE CANCER
     Route: 065
     Dates: start: 20070101

REACTIONS (2)
  - Pneumonia [Fatal]
  - Hyperkalaemia [Not Recovered/Not Resolved]
